FAERS Safety Report 5185230-6 (Version None)
Quarter: 2006Q4

REPORT INFORMATION
  Report Type: 
  Country: None (occurrence: None)
  Receive Date: 20061220
  Receipt Date: 20060626
  Transmission Date: 20070319
  Serious: No
  Sender: FDA-Public Use
  Company Number: US-GLAXOSMITHKLINE-A0610267A

PATIENT
  Age: 52 Year
  Sex: Female

DRUGS (3)
  1. NICODERM CQ [Suspect]
  2. NICODERM CQ [Suspect]
  3. NICODERM CQ [Suspect]

REACTIONS (5)
  - APPLICATION SITE URTICARIA [None]
  - DRUG INEFFECTIVE [None]
  - HYPERSENSITIVITY [None]
  - INTENTIONAL DRUG MISUSE [None]
  - NICOTINE DEPENDENCE [None]
